FAERS Safety Report 6340311-6 (Version None)
Quarter: 2009Q3

REPORT INFORMATION
  Report Type: 
  Country: None (occurrence: None)
  Receive Date: 20090902
  Receipt Date: 20090820
  Transmission Date: 20100115
  Serious: Yes (Other)
  Sender: FDA-Public Use
  Company Number: GXKR2009DK08957

PATIENT
  Age: 75 Year
  Sex: Female

DRUGS (8)
  1. FLUMAZENIL [Suspect]
     Indication: DRUG TOXICITY
     Dosage: 0.4, 0.3, 0.3 MG DURING THE FIRST HOUR, AURAL
  2. BENZODIAZEPINES (NO INGREDIENTS/SUBSTANCES) [Concomitant]
  3. WARFARIN SODIUM [Concomitant]
     Indication: INTENTIONAL OVERDOSE
  4. FLUPENTIXOL (FLUPENTIXOL) [Concomitant]
  5. TRAMADOL HCL [Concomitant]
  6. TRICYCLIC ANTIDEPRESSANTS (NO INGREDIENTS/SUBSTANCES) [Concomitant]
  7. NALOXONE [Concomitant]
  8. ACETYLCYSTEINE [Concomitant]

REACTIONS (6)
  - ENDOTRACHEAL INTUBATION [None]
  - HALLUCINATION [None]
  - HEPATIC FUNCTION ABNORMAL [None]
  - INTERNATIONAL NORMALISED RATIO INCREASED [None]
  - METABOLIC ACIDOSIS [None]
  - STATUS EPILEPTICUS [None]
